FAERS Safety Report 10920369 (Version 1)
Quarter: 2015Q1

REPORT INFORMATION
  Report Type: Spontaneous
  Country: US (occurrence: US)
  Receive Date: 20150317
  Receipt Date: 20150317
  Transmission Date: 20150721
  Serious: No
  Sender: FDA-Public Use
  Company Number: US-BIOGENIDEC-2015BI030847

PATIENT
  Sex: Female

DRUGS (1)
  1. TECFIDERA [Suspect]
     Active Substance: DIMETHYL FUMARATE
     Indication: MULTIPLE SCLEROSIS

REACTIONS (6)
  - Hypoaesthesia [Unknown]
  - Feeling cold [Unknown]
  - Sensory disturbance [Unknown]
  - Odynophagia [Unknown]
  - Arthritis [Unknown]
  - Multiple sclerosis relapse [Recovered/Resolved]
